FAERS Safety Report 9688946 (Version 2)
Quarter: 2013Q4

REPORT INFORMATION
  Report Type: Spontaneous
  Country: US (occurrence: US)
  Receive Date: 20131114
  Receipt Date: 20131212
  Transmission Date: 20140711
  Serious: No
  Sender: FDA-Public Use
  Company Number: US-009507513-1310USA011224

PATIENT
  Age: 69 Year
  Sex: Male

DRUGS (1)
  1. AZASITE [Suspect]
     Indication: INFECTION
     Dosage: ONE TIME / INSTILL ONE DROP TWICE A DAY FOR TWO DAYS IN BOTH EYES; THEN ONCE DAILY FOR FIVE DAYS
     Route: 047
     Dates: start: 20131021, end: 20131021

REACTIONS (4)
  - Ocular hyperaemia [Recovering/Resolving]
  - Eye pain [Recovered/Resolved]
  - Eye irritation [Recovering/Resolving]
  - Product quality issue [Unknown]
